FAERS Safety Report 9414301 (Version 1)
Quarter: 2013Q3

REPORT INFORMATION
  Report Type: Spontaneous
  Country: CA (occurrence: CA)
  Receive Date: 20130723
  Receipt Date: 20130723
  Transmission Date: 20140515
  Serious: Yes (Hospitalization, Other)
  Sender: FDA-Public Use
  Company Number: CA-BAXTER-2013BAX027453

PATIENT
  Age: 4 Year
  Sex: Female

DRUGS (6)
  1. IFEX (IFOSFAMIDE FOR INJECTION) 3G [Suspect]
     Indication: NEPHROBLASTOMA
     Route: 065
  2. UROMITEXAN (MESNA INJECTION) 100MG/ML [Suspect]
     Indication: NEPHROBLASTOMA
     Route: 065
  3. CARBOPLATIN [Suspect]
     Indication: NEPHROBLASTOMA
     Route: 065
  4. ETOPOSIDE [Suspect]
     Indication: NEPHROBLASTOMA
     Route: 065
  5. VANCOMYCIN [Concomitant]
     Indication: PRODUCT USED FOR UNKNOWN INDICATION
  6. MEROPENEM [Concomitant]
     Indication: PRODUCT USED FOR UNKNOWN INDICATION

REACTIONS (1)
  - Nephropathy toxic [Recovered/Resolved]
